FAERS Safety Report 4386441-X (Version None)
Quarter: 2004Q2

REPORT INFORMATION
  Report Type: 
  Country: None (occurrence: None)
  Receive Date: 20040623
  Receipt Date: 20040609
  Transmission Date: 20050107
  Serious: Yes (Death)
  Sender: FDA-Public Use
  Company Number: GBS040514921

PATIENT
  Age: 66 Year
  Sex: Female
  Weight: 41 kg

DRUGS (4)
  1. FLUOXETINE [Suspect]
     Indication: DEPRESSION
     Dosage: 20 MG/2 DAY
     Dates: start: 20030401
  2. PREMARIN [Concomitant]
  3. BUSPIRONE [Concomitant]
  4. DIAZEPAM [Concomitant]

REACTIONS (14)
  - ACCIDENTAL EXPOSURE [None]
  - AGITATION [None]
  - ANXIETY [None]
  - ATHEROSCLEROSIS [None]
  - CORONARY ARTERY DISEASE [None]
  - DELUSION [None]
  - INTENTIONAL OVERDOSE [None]
  - MAJOR DEPRESSION [None]
  - OVARIAN CYST [None]
  - PULMONARY CONGESTION [None]
  - RESTLESSNESS [None]
  - SHOCK [None]
  - THERMAL BURN [None]
  - VASCULAR CALCIFICATION [None]
